FAERS Safety Report 5103748-9 (Version None)
Quarter: 2006Q3

REPORT INFORMATION
  Report Type: 
  Country: None (occurrence: None)
  Receive Date: 20060913
  Receipt Date: 20060911
  Transmission Date: 20061208
  Serious: Yes (Other)
  Sender: FDA-Public Use
  Company Number: 2006UW17823

PATIENT
  Age: 59 Year
  Sex: Female
  Weight: 54.4 kg

DRUGS (5)
  1. ARIMIDEX [Suspect]
     Indication: BREAST CANCER FEMALE
     Route: 048
     Dates: start: 20010101, end: 20060701
  2. PROZAC [Concomitant]
  3. TRAZODONE HCL [Concomitant]
  4. VITAMINS [Concomitant]
  5. MINERAL TAB [Concomitant]

REACTIONS (4)
  - FATIGUE [None]
  - GASTRIC DISORDER [None]
  - HEADACHE [None]
  - KIDNEY ENLARGEMENT [None]
